FAERS Safety Report 8229578-7 (Version None)
Quarter: 2012Q1

REPORT INFORMATION
  Report Type: 
  Country: None (occurrence: None)
  Receive Date: 20120322
  Receipt Date: 20120313
  Transmission Date: 20120608
  Serious: Yes (Other)
  Sender: FDA-Public Use
  Company Number: MX-ABBOTT-12P-107-0908592-00

PATIENT
  Sex: Male

DRUGS (4)
  1. ABACAVIR [Concomitant]
     Indication: HIV INFECTION
     Route: 048
     Dates: start: 20110518, end: 20111102
  2. LAMIVUDINE (EPIVIR HBV) [Concomitant]
     Indication: HIV INFECTION
     Route: 048
     Dates: start: 20110518, end: 20111102
  3. RITONAVIR [Suspect]
     Indication: HIV INFECTION
     Route: 048
     Dates: start: 20110518, end: 20111103
  4. ATAZANAVIR [Concomitant]
     Indication: HIV INFECTION
     Route: 048
     Dates: start: 20110518, end: 20111103

REACTIONS (2)
  - GASTROENTERITIS [None]
  - ELECTROCARDIOGRAM QT PROLONGED [None]
